FAERS Safety Report 5092508-3 (Version None)
Quarter: 2006Q3

REPORT INFORMATION
  Report Type: 
  Country: None (occurrence: None)
  Receive Date: 20060830
  Receipt Date: 20060721
  Transmission Date: 20061208
  Serious: Yes (Hospitalization, Disabling)
  Sender: FDA-Public Use
  Company Number: US-BRISTOL-MYERS SQUIBB COMPANY-13450754

PATIENT
  Age: 68 Year
  Sex: Female

DRUGS (14)
  1. ABILIFY [Suspect]
     Indication: BIPOLAR DISORDER
     Dosage: INCREASED TO 15 MG DAILY, THEN DISCONTINUED
     Route: 048
  2. DEPAKOTE [Concomitant]
  3. REMERON [Concomitant]
  4. COGENTIN [Concomitant]
  5. SULAR [Concomitant]
  6. GLUCOTROL XL [Concomitant]
  7. SYNTHROID [Concomitant]
  8. ZOCOR [Concomitant]
  9. HYDROCHLOROTHIAZIDE [Concomitant]
  10. LANTUS [Concomitant]
  11. ACTOS [Concomitant]
  12. FLOMAX [Concomitant]
  13. TRIMETHOPRIM [Concomitant]
  14. NAPROXEN [Concomitant]

REACTIONS (6)
  - CATATONIA [None]
  - DRUG EFFECT DECREASED [None]
  - DRUG INEFFECTIVE [None]
  - NEUROLEPTIC MALIGNANT SYNDROME [None]
  - TREMOR [None]
  - URINARY TRACT INFECTION [None]
